FAERS Safety Report 5323535-6 (Version None)
Quarter: 2007Q2

REPORT INFORMATION
  Report Type: 
  Country: None (occurrence: None)
  Receive Date: 20070514
  Receipt Date: 20070510
  Transmission Date: 20071010
  Serious: Yes (Other)
  Sender: FDA-Public Use
  Company Number: US-BAYER-200710141BWH

PATIENT
  Age: 49 Year
  Sex: Female
  Weight: 66 kg

DRUGS (2)
  1. NIMOTOP [Suspect]
     Indication: BRAIN OPERATION
     Route: 048
     Dates: start: 20061227, end: 20061227
  2. DILANTIN [Concomitant]
     Dates: start: 20061227

REACTIONS (4)
  - BLOOD PRESSURE DECREASED [None]
  - HEAD INJURY [None]
  - HEADACHE [None]
  - LOSS OF CONSCIOUSNESS [None]
